FAERS Safety Report 14200609 (Version 1)
Quarter: 2017Q4

REPORT INFORMATION
  Report Type: Spontaneous
  Country: VN (occurrence: VN)
  Receive Date: 20171117
  Receipt Date: 20171117
  Transmission Date: 20180321
  Serious: Yes (Other)
  Sender: FDA-Public Use
  Company Number: VN-PFIZER INC-2017488563

PATIENT
  Sex: Male

DRUGS (1)
  1. SOLU-MEDROL [Suspect]
     Active Substance: METHYLPREDNISOLONE SODIUM SUCCINATE
     Dosage: 40 MG, UNK
     Route: 042

REACTIONS (4)
  - Blood pressure increased [Unknown]
  - Pyrexia [Unknown]
  - Heart rate increased [Unknown]
  - Chills [Unknown]
